FAERS Safety Report 4317526-1 (Version None)
Quarter: 2004Q1

REPORT INFORMATION
  Report Type: 
  Country: None (occurrence: None)
  Receive Date: 20040312
  Receipt Date: 20040227
  Transmission Date: 20041129
  Serious: Yes (Death)
  Sender: FDA-Public Use
  Company Number: 2004-DE-00953GD (0)

PATIENT
  Age: 41 Year
  Sex: Male

DRUGS (3)
  1. METHOTREXATE [Suspect]
     Indication: CENTRAL NERVOUS SYSTEM LYMPHOMA
     Dosage: SEE IMAGE
  2. THIOTEPA [Suspect]
     Indication: CENTRAL NERVOUS SYSTEM LYMPHOMA
  3. PROCARBAZINE (PROCARBAZINE) [Suspect]
     Indication: CENTRAL NERVOUS SYSTEM LYMPHOMA

REACTIONS (14)
  - CEREBRAL ATHEROSCLEROSIS [None]
  - CEREBRAL ATROPHY [None]
  - CEREBRAL VENTRICLE DILATATION [None]
  - CORONARY ARTERY STENOSIS [None]
  - DEMENTIA [None]
  - DEMYELINATION [None]
  - DEPRESSION [None]
  - GAIT DISTURBANCE [None]
  - GLIOSIS [None]
  - LEUKOENCEPHALOPATHY [None]
  - NEUROTOXICITY [None]
  - NUCLEAR MAGNETIC RESONANCE IMAGING BRAIN ABNORMAL [None]
  - PERSONALITY CHANGE [None]
  - URINARY INCONTINENCE [None]
